FAERS Safety Report 8000180-5 (Version None)
Quarter: 2011Q4

REPORT INFORMATION
  Report Type: 
  Country: None (occurrence: None)
  Receive Date: 20111123
  Receipt Date: 20111101
  Transmission Date: 20120403
  Serious: Yes (Other)
  Sender: FDA-Public Use
  Company Number: 335777

PATIENT
  Age: 57 Year
  Sex: Female
  Weight: 73.9 kg

DRUGS (1)
  1. VICTOZA [Suspect]
     Indication: TYPE 2 DIABETES MELLITUS
     Dosage: SUBCUTANEOUS
     Route: 058
     Dates: start: 20110525, end: 20110922

REACTIONS (2)
  - NAUSEA [None]
  - PANCREATITIS ACUTE [None]
